FAERS Safety Report 5166843-4 (Version None)
Quarter: 2006Q4

REPORT INFORMATION
  Report Type: 
  Country: None (occurrence: None)
  Receive Date: 20061207
  Receipt Date: 20061128
  Transmission Date: 20070319
  Serious: Yes (Death, Other)
  Sender: FDA-Public Use
  Company Number: JP-JNJFOC-20040806920

PATIENT
  Sex: Female

DRUGS (40)
  1. LEUSTATIN [Suspect]
     Route: 041
  2. LEUSTATIN [Suspect]
     Route: 041
  3. LEUSTATIN [Suspect]
     Indication: B-CELL LYMPHOMA
     Route: 041
  4. ETOPOSIDE [Suspect]
     Route: 048
  5. ETOPOSIDE [Suspect]
     Indication: B-CELL LYMPHOMA
     Route: 048
  6. VINDESINE SULFATE [Suspect]
     Indication: B-CELL LYMPHOMA
     Route: 041
  7. CARBOPLATIN [Suspect]
     Indication: B-CELL LYMPHOMA
     Route: 041
  8. CEFTRIAXONE SODIUM [Concomitant]
     Route: 041
  9. CEFTRIAXONE SODIUM [Concomitant]
     Indication: BRONCHITIS
     Route: 041
  10. PREDNISOLONE [Concomitant]
     Route: 048
  11. PREDNISOLONE [Concomitant]
     Indication: B-CELL LYMPHOMA
     Route: 048
  12. UBIDECARENONE [Concomitant]
     Indication: CARDIAC FAILURE CHRONIC
     Route: 048
  13. MENATETRENONE [Concomitant]
     Indication: OSTEOPOROSIS
     Route: 048
  14. FAMOTIDINE [Concomitant]
     Indication: OESOPHAGITIS
     Route: 048
  15. FLUCONAZOLE [Concomitant]
     Indication: ANTIFUNGAL PROPHYLAXIS
     Route: 048
  16. ALFACALCIDOL [Concomitant]
     Indication: OSTEOPOROSIS
     Route: 048
  17. THEOPHYLLINE [Concomitant]
     Indication: ASTHMA PROPHYLAXIS
     Route: 048
  18. BROTIZOLAM [Concomitant]
     Indication: INSOMNIA
     Route: 048
  19. LENOGRASTIM [Concomitant]
     Route: 041
  20. LENOGRASTIM [Concomitant]
     Route: 041
  21. LENOGRASTIM [Concomitant]
     Route: 041
  22. LENOGRASTIM [Concomitant]
     Route: 041
  23. LENOGRASTIM [Concomitant]
     Route: 041
  24. LENOGRASTIM [Concomitant]
     Route: 041
  25. LENOGRASTIM [Concomitant]
     Route: 041
  26. LENOGRASTIM [Concomitant]
     Route: 041
  27. CONCENTRATED HUMAN BLOOD PLATELET [Concomitant]
     Route: 041
  28. CONCENTRATED HUMAN BLOOD PLATELET [Concomitant]
     Route: 041
  29. CONCENTRATED HUMAN BLOOD PLATELET [Concomitant]
     Route: 041
  30. CONCENTRATED HUMAN BLOOD PLATELET [Concomitant]
     Route: 041
  31. CONCENTRATED HUMAN BLOOD PLATELET [Concomitant]
     Route: 041
  32. CONCENTRATED HUMAN BLOOD PLATELET [Concomitant]
     Route: 041
  33. CARVEDILOL [Concomitant]
     Indication: CARDIAC FAILURE
     Route: 048
  34. HALFDIGOXIN [Concomitant]
     Indication: ATRIAL FIBRILLATION
     Route: 048
  35. SPIRONOLACTONE [Concomitant]
     Indication: CARDIAC FAILURE
     Route: 048
  36. FUROSEMIDE [Concomitant]
     Route: 048
  37. FUROSEMIDE [Concomitant]
     Indication: CARDIAC FAILURE
     Route: 048
  38. RITUXIMAB [Concomitant]
     Indication: B-CELL LYMPHOMA
     Route: 041
  39. CONCENTRATED HUMAN RED BLOOD CELLS [Concomitant]
     Route: 041
  40. CONCENTRATED HUMAN RED BLOOD CELLS [Concomitant]
     Route: 041

REACTIONS (13)
  - ALANINE AMINOTRANSFERASE INCREASED [None]
  - ANAEMIA [None]
  - ASPARTATE AMINOTRANSFERASE INCREASED [None]
  - BLOOD BILIRUBIN INCREASED [None]
  - BLOOD LACTATE DEHYDROGENASE INCREASED [None]
  - HYPOALBUMINAEMIA [None]
  - HYPOPROTEINAEMIA [None]
  - LYMPHOPENIA [None]
  - NEOPLASM MALIGNANT [None]
  - PLATELET COUNT DECREASED [None]
  - PNEUMONIA [None]
  - PYREXIA [None]
  - WHITE BLOOD CELL COUNT DECREASED [None]
